FAERS Safety Report 23407289 (Version 2)
Quarter: 2024Q1

REPORT INFORMATION
  Report Type: Spontaneous
  Country: US (occurrence: None)
  Receive Date: 20240116
  Receipt Date: 20240306
  Transmission Date: 20240410
  Serious: No
  Sender: FDA-Public Use
  Company Number: 2023A287522

PATIENT

DRUGS (2)
  1. BREZTRI [Suspect]
     Active Substance: BUDESONIDE\FORMOTEROL\GLYCOPYRROLATE
     Dosage: 2 PUFF TWO TIMES A DAY
     Route: 055
  2. BREZTRI [Suspect]
     Active Substance: BUDESONIDE\FORMOTEROL\GLYCOPYRROLATE
     Dosage: 1 PUFF TWO TIMES A DAY
     Route: 055

REACTIONS (3)
  - Fungal infection [Recovered/Resolved]
  - Dysphonia [Not Recovered/Not Resolved]
  - Intentional product misuse [Not Recovered/Not Resolved]
